FAERS Safety Report 25619784 (Version 2)
Quarter: 2025Q3

REPORT INFORMATION
  Report Type: Report from Study
  Country: CA (occurrence: CA)
  Receive Date: 20250729
  Receipt Date: 20250818
  Transmission Date: 20251021
  Serious: No
  Sender: BAUSCH AND LOMB
  Company Number: CA-BAUSCH-BH-2025-015433

PATIENT
  Age: 49 Year
  Sex: Female

DRUGS (2)
  1. SILIQ [Suspect]
     Active Substance: BRODALUMAB
     Indication: Psoriasis
     Dosage: 210 MG / 1.5 ML, WEEKLY (WEEK 0, 1, 2)
     Route: 058
     Dates: start: 20221201, end: 202212
  2. SILIQ [Suspect]
     Active Substance: BRODALUMAB
     Dosage: 210 MG / 1.5 ML, EVERY 2 WEEK(S)
     Route: 058
     Dates: start: 2023, end: 2025

REACTIONS (1)
  - Intentional product use issue [Unknown]
